FAERS Safety Report 6114612-0 (Version None)
Quarter: 2009Q1

REPORT INFORMATION
  Report Type: 
  Country: None (occurrence: None)
  Receive Date: 20090311
  Receipt Date: 20080305
  Transmission Date: 20090719
  Serious: Yes (Hospitalization)
  Sender: FDA-Public Use
  Company Number: US200802000926

PATIENT
  Age: 36 Year
  Sex: Female
  Weight: 74.8 kg

DRUGS (3)
  1. GEMZAR [Suspect]
     Indication: DIFFUSE LARGE B-CELL LYMPHOMA
     Dosage: 800 MG/M2 OTHER UNK
  2. NAVELBINE [Concomitant]
  3. DOXIL [Concomitant]

REACTIONS (2)
  - HAEMOGLOBIN DECREASED [None]
  - PULMONARY TOXICITY [None]
